FAERS Safety Report 23863791 (Version 6)
Quarter: 2024Q3

REPORT INFORMATION
  Report Type: Spontaneous
  Country: JP (occurrence: JP)
  Receive Date: 20240516
  Receipt Date: 20240820
  Transmission Date: 20241016
  Serious: No
  Sender: PFIZER
  Company Number: JP-PFIZER INC-PV202400059294

PATIENT
  Age: 8 Decade
  Sex: Female

DRUGS (19)
  1. ENBREL [Suspect]
     Active Substance: BENZYL ALCOHOL\ETANERCEPT
     Indication: Rheumatoid arthritis
     Dosage: 50 MG, WEEKLY
     Route: 058
  2. AMLODIPINE [Concomitant]
     Active Substance: AMLODIPINE BESYLATE
     Dosage: 2.5 MG, 1X/DAY (AFTER DINNER)
  3. BIOFERMIN [BIFIDOBACTERIUM BIFIDUM] [Concomitant]
     Dosage: 1 TABLET, 3X/DAY (AFTER EACH MEAL)
  4. CALCIUM POLYSTYRENE SULFONATE [Concomitant]
     Active Substance: CALCIUM POLYSTYRENE SULFONATE
     Dosage: 25 G, 1X/DAY (AFTER DINNER)
  5. ENTRESTO [Concomitant]
     Active Substance: SACUBITRIL\VALSARTAN
     Dosage: 50 MG, 2X/DAY, (AFTER BREAKFAST AND DINNER)
  6. BISOPROLOL FUMARATE [Concomitant]
     Active Substance: BISOPROLOL FUMARATE
     Dosage: 5 MG, 1X/DAY (AFTER BREAKFAST)
  7. LEVOFLOXACIN [Concomitant]
     Active Substance: LEVOFLOXACIN
     Dosage: 500 MG, 1X/DAY (AFTER BREAKFAST)
     Dates: start: 20240430, end: 20240430
  8. LEVOFLOXACIN [Concomitant]
     Active Substance: LEVOFLOXACIN
     Dosage: 250 MG, 1X/DAY (AFTER BREAKFAST)
  9. LEVOFLOXACIN [Concomitant]
     Active Substance: LEVOFLOXACIN
     Dosage: 500 MG, ALTERNATE DAY (AFTER BREAKFAST)
     Route: 048
     Dates: start: 20240502
  10. TEPRENONE [Concomitant]
     Active Substance: TEPRENONE
     Dosage: 50 MG, 3X/DAY (AFTER EACH MEAL)
  11. RABEPRAZOLE SODIUM [Concomitant]
     Active Substance: RABEPRAZOLE SODIUM
     Dosage: 10 MG, 1X/DAY (AFTER BREAKFAST)
  12. FEBUXOSTAT [Concomitant]
     Active Substance: FEBUXOSTAT
     Dosage: 10 MG, 1X/DAY (AFTER BREAKFAST)
  13. BAZEDOXIFENE [Concomitant]
     Active Substance: BAZEDOXIFENE
     Dosage: 20 MG, 1X/DAY (AFTER BREAKFAST)
  14. SULFAMETHOXAZOLE\TRIMETHOPRIM [Concomitant]
     Active Substance: SULFAMETHOXAZOLE\TRIMETHOPRIM
     Dosage: 1 TABLET, ALTERNATE DAY (AFTER BREAKFAST)
  15. PREDONINE [Concomitant]
     Active Substance: PREDNISOLONE
     Dosage: 7.5 MG, 1X/DAY (1.5 TABLETS AFTER BREAKFAST)
  16. PREDNISOLONE [Concomitant]
     Active Substance: PREDNISOLONE
     Dosage: 1 MG, 1X/DAY (AFTER BREAKFAST)
  17. ESZOPICLONE [Concomitant]
     Active Substance: ESZOPICLONE
     Dosage: 2 MG, 1X/DAY (BEFORE BEDTIME)
  18. DAYVIGO [Concomitant]
     Active Substance: LEMBOREXANT
     Dosage: 5 MG, 1X/DAY (BEFORE BEDTIME)
  19. CALCIUM SENNOSIDES [Concomitant]
     Active Substance: SENNOSIDES
     Dosage: 24 MG, 1X/DAY (BEFORE BEDTIME)

REACTIONS (3)
  - Contusion [Unknown]
  - Haemorrhage subcutaneous [Unknown]
  - Device malfunction [Unknown]

NARRATIVE: CASE EVENT DATE: 20240401
